FAERS Safety Report 4789730-X (Version None)
Quarter: 2005Q4

REPORT INFORMATION
  Report Type: 
  Country: None (occurrence: None)
  Receive Date: 20051005
  Receipt Date: 20051005
  Transmission Date: 20060501
  Serious: Yes (Hospitalization, Other)
  Sender: FDA-Public Use
  Company Number: None

PATIENT
  Sex: Male
  Weight: 85.5 kg

DRUGS (2)
  1. GEMCITABINE [Suspect]
     Indication: RENAL CELL CARCINOMA STAGE UNSPECIFIED
     Dosage: SEE IMAGE
     Route: 042
     Dates: start: 20050923, end: 20050923
  2. CAPECITABINE [Suspect]
     Dosage: SEE IMAGE
     Route: 048
     Dates: start: 20050923, end: 20050929

REACTIONS (3)
  - CHEST PAIN [None]
  - HYPERLIPIDAEMIA [None]
  - TROPONIN INCREASED [None]
